FAERS Safety Report 8218062-2 (Version None)
Quarter: 2012Q1

REPORT INFORMATION
  Report Type: 
  Country: None (occurrence: None)
  Receive Date: 20120319
  Receipt Date: 20120309
  Transmission Date: 20120608
  Serious: Yes (Hospitalization)
  Sender: FDA-Public Use
  Company Number: JP-PFIZER INC-2012065057

PATIENT
  Age: 65 Year
  Sex: Male
  Weight: 65 kg

DRUGS (10)
  1. OLMESARTAN MEDOXOMIL [Concomitant]
     Indication: HYPERTENSION
     Dosage: UNK
     Dates: start: 20111029
  2. ZYRTEC [Concomitant]
     Indication: ALLERGY PROPHYLAXIS
     Dosage: UNK
     Dates: start: 20120216
  3. CHLOR-TRIMETON [Concomitant]
     Indication: ALLERGY PROPHYLAXIS
     Dosage: UNK
     Dates: start: 20120124
  4. DEXAMETHASONE SODIUM PHOSPHATE [Concomitant]
     Indication: ALLERGY PROPHYLAXIS
     Dosage: UNK
     Dates: start: 20120124
  5. ALOXI [Concomitant]
     Indication: NAUSEA
     Dosage: UNK
     Dates: start: 20120124
  6. PURSENID [Concomitant]
     Indication: CONSTIPATION
     Dosage: UNK
     Dates: start: 20120208
  7. IRINOTECAN HCL [Suspect]
     Indication: COLORECTAL CANCER METASTATIC
     Dosage: UNK
     Route: 042
     Dates: start: 20120124
  8. FLUOROURACIL [Suspect]
     Indication: COLORECTAL CANCER METASTATIC
     Dosage: UNK
     Route: 042
     Dates: start: 20120124
  9. LEUCOVORIN CALCIUM [Suspect]
     Indication: COLORECTAL CANCER METASTATIC
     Dosage: UNK
     Route: 042
     Dates: start: 20120124
  10. BLINDED THERAPY [Suspect]
     Indication: COLORECTAL CANCER METASTATIC
     Dosage: UNK
     Route: 042
     Dates: start: 20120124

REACTIONS (1)
  - OPTIC NEURITIS [None]
